FAERS Safety Report 9387980 (Version 2)
Quarter: 2013Q4

REPORT INFORMATION
  Report Type: Spontaneous
  Country: US (occurrence: US)
  Receive Date: 20130708
  Receipt Date: 20131106
  Transmission Date: 20140711
  Serious: Yes (Other)
  Sender: FDA-Public Use
  Company Number: US-BAYER-2013-080573

PATIENT
  Sex: Female
  Weight: 58.96 kg

DRUGS (8)
  1. BETASERON [Suspect]
     Dosage: 0.3 MG, QOD
     Route: 058
  2. GABAPENTIN [Concomitant]
     Dosage: 300 MG, UNK
  3. CITALOPRAM [Concomitant]
     Dosage: 40 MG, UNK
  4. ADVAIR [Concomitant]
  5. VITAMIN D [Concomitant]
     Dosage: 400 U, UNK
  6. PROAIR HFA [Concomitant]
  7. VESICARE [Concomitant]
     Dosage: 5 MG, UNK
  8. MELATONIN [Concomitant]
     Dosage: 10 MG, UNK

REACTIONS (2)
  - Multiple sclerosis relapse [Unknown]
  - Drug ineffective [None]
